FAERS Safety Report 7351304-4 (Version None)
Quarter: 2011Q1

REPORT INFORMATION
  Report Type: 
  Country: None (occurrence: None)
  Receive Date: 20110314
  Receipt Date: 20110309
  Transmission Date: 20110831
  Serious: Yes (Other)
  Sender: FDA-Public Use
  Company Number: US-ABBOTT-11P-163-0710404-00

PATIENT
  Sex: Female
  Weight: 88.53 kg

DRUGS (3)
  1. HUMIRA [Suspect]
     Indication: CROHN'S DISEASE
     Route: 058
     Dates: start: 20100801, end: 20101101
  2. COLAZOL [Concomitant]
     Indication: CROHN'S DISEASE
     Route: 048
  3. LEXAPRO [Concomitant]
     Indication: ANXIETY
     Route: 048
     Dates: start: 20040101

REACTIONS (5)
  - SKIN BURNING SENSATION [None]
  - WHITE BLOOD CELL COUNT DECREASED [None]
  - MALIGNANT ANORECTAL NEOPLASM [None]
  - DRUG INEFFECTIVE [None]
  - PLATELET COUNT DECREASED [None]
